FAERS Safety Report 25311569 (Version 2)
Quarter: 2025Q2

REPORT INFORMATION
  Report Type: Spontaneous
  Country: BR (occurrence: BR)
  Receive Date: 20250514
  Receipt Date: 20250627
  Transmission Date: 20250717
  Serious: Yes (Other)
  Sender: SANOFI AVENTIS
  Company Number: BR-SANOFI-02500549

PATIENT
  Age: 45 Year
  Sex: Female
  Weight: 51 kg

DRUGS (9)
  1. ENOXAPARIN SODIUM [Suspect]
     Active Substance: ENOXAPARIN SODIUM
     Indication: Hypercoagulation
     Dosage: 40 MG, QD
     Dates: start: 2021
  2. VITAMIN C [Concomitant]
     Active Substance: ASCORBIC ACID
     Indication: Vitamin supplementation
     Dosage: UNK UNK, QD
     Route: 048
  3. VITAMIN E [Concomitant]
     Active Substance: .ALPHA.-TOCOPHEROL
     Indication: Vitamin supplementation
     Dosage: UNK UNK, QD
     Route: 048
  4. VITAMIN D [Concomitant]
     Active Substance: VITAMIN D NOS
     Indication: Vitamin supplementation
     Dosage: UNK UNK, QD
     Route: 048
  5. CYANOCOBALAMIN [Concomitant]
     Active Substance: CYANOCOBALAMIN
     Indication: Vitamin supplementation
     Dosage: UNK UNK, QD
  6. REGENESIS [ASCORBIC ACID;BETACAROTENE;BIOTIN;CALCIUM PANTOTHENATE;COPP [Concomitant]
     Dosage: 1 DF, QD (1 TABLET A DAY)
  7. CALDE KM [Concomitant]
     Dosage: 2 DF, QD (1 TABLET AFTER LUNCH AND 1 AFTER DINNER)
  8. ASPIRIN\DIHYDROXYALUMINUM AMINOACETATE ANHYDROUS\MAGNESIUM CARBONATE [Concomitant]
     Active Substance: ASPIRIN\DIHYDROXYALUMINUM AMINOACETATE ANHYDROUS\MAGNESIUM CARBONATE
     Dosage: 2 DF, QD (2 TABLETS AT NIGHT UP TO THE 37TH WEEK)
  9. ASPIRIN\DIHYDROXYALUMINUM AMINOACETATE ANHYDROUS\MAGNESIUM CARBONATE [Concomitant]
     Active Substance: ASPIRIN\DIHYDROXYALUMINUM AMINOACETATE ANHYDROUS\MAGNESIUM CARBONATE
     Indication: Product used for unknown indication
     Dosage: 2 TABLETS AT NIGHT UNTIL THE 37THWEEK

REACTIONS (5)
  - Vanishing twin syndrome [Unknown]
  - Gestational diabetes [Unknown]
  - Pre-eclampsia [Unknown]
  - Hypercoagulation [Unknown]
  - Maternal exposure during pregnancy [Unknown]
